FAERS Safety Report 8267834-7 (Version None)
Quarter: 2012Q2

REPORT INFORMATION
  Report Type: 
  Country: None (occurrence: None)
  Receive Date: 20120404
  Receipt Date: 20120321
  Transmission Date: 20120825
  Serious: Yes (Other)
  Sender: FDA-Public Use
  Company Number: 2012MA003967

PATIENT
  Age: 60 Year
  Sex: Male

DRUGS (15)
  1. FERROUS SUL ELX [Suspect]
     Indication: MATERNAL EXPOSURE DURING PREGNANCY
     Dates: start: 20120309
  2. NOVOMIX [Concomitant]
  3. FUROSEMIDE [Concomitant]
  4. ACETAMINOPHEN [Concomitant]
  5. ACETYLSALICYLIC ACID SRT [Concomitant]
  6. ENALAPRIL MALEATE [Concomitant]
  7. DIPYRIDAMOLE [Concomitant]
  8. LANSOPRAZOLE [Concomitant]
  9. BISOPROLOL FUMARATE [Concomitant]
  10. ASCORBIC ACID [Concomitant]
  11. SIMVASTATIN [Concomitant]
  12. CARBIMAZOLE [Concomitant]
  13. LERCANIDIPINE [Concomitant]
  14. PHOLCODINE [Concomitant]
  15. VITAMIN B SUBSTANCES [Concomitant]

REACTIONS (2)
  - DRUG ERUPTION [None]
  - DRUG INTOLERANCE [None]
